FAERS Safety Report 10599181 (Version 4)
Quarter: 2015Q1

REPORT INFORMATION
  Report Type: Report from Study
  Country: GB (occurrence: GB)
  Receive Date: 20141121
  Receipt Date: 20150107
  Transmission Date: 20150720
  Serious: Yes (Disabling)
  Sender: FDA-Public Use
  Company Number: PHFR2013GB005203

PATIENT
  Age: 36 Year
  Sex: Female

DRUGS (4)
  1. GABAPENTIN. [Concomitant]
     Active Substance: GABAPENTIN
     Indication: NEURALGIA
     Dosage: 300 MG, UNK
     Route: 065
  2. AMITRIPTYLINE [Concomitant]
     Active Substance: AMITRIPTYLINE
     Indication: PRODUCT USED FOR UNKNOWN INDICATION
     Dosage: 10 MG, UNK
     Route: 048
  3. GILENYA [Suspect]
     Active Substance: FINGOLIMOD HYDROCHLORIDE
     Indication: MULTIPLE SCLEROSIS
     Dosage: 0.5 MG, QD
     Route: 048
     Dates: start: 20130808, end: 20131014
  4. GILENYA [Suspect]
     Active Substance: FINGOLIMOD HYDROCHLORIDE
     Dosage: 0.5 MG, QD
     Route: 048
     Dates: start: 20140717

REACTIONS (8)
  - Photophobia [Recovered/Resolved]
  - Visual impairment [Unknown]
  - Vision blurred [Recovering/Resolving]
  - Nausea [Recovered/Resolved]
  - Headache [Recovered/Resolved]
  - Diplopia [Recovering/Resolving]
  - Memory impairment [Recovered/Resolved]
  - Phonophobia [Recovered/Resolved]

NARRATIVE: CASE EVENT DATE: 20130808
